FAERS Safety Report 8473464-4 (Version None)
Quarter: 2012Q2

REPORT INFORMATION
  Report Type: 
  Country: None (occurrence: None)
  Receive Date: 20120622
  Receipt Date: 20120622
  Transmission Date: 20120825
  Serious: Yes (Hospitalization)
  Sender: FDA-Public Use
  Company Number: None

PATIENT
  Sex: Female
  Weight: 60.9 kg

DRUGS (10)
  1. LISINOPRIL AND HYDROCHLOROTHIAZIDE [Concomitant]
  2. AMBIEN [Concomitant]
  3. JOINT HEALTH  COMPLEX [Concomitant]
  4. TAXOL [Suspect]
     Dosage: 295 MG
  5. PRILOSEC [Concomitant]
  6. PROMETHAZINE [Concomitant]
  7. OXYCODONE/ACETAMINOPHEN [Concomitant]
  8. MULTI-VITAMIN [Concomitant]
  9. NITROFURANTOIN [Concomitant]
  10. CARBOPLATIN [Suspect]
     Dosage: 525 MG

REACTIONS (7)
  - BLOOD SODIUM DECREASED [None]
  - NAUSEA [None]
  - TACHYCARDIA [None]
  - HYPOPHAGIA [None]
  - DEHYDRATION [None]
  - MYALGIA [None]
  - RENAL FAILURE [None]
